FAERS Safety Report 20448696 (Version 2)
Quarter: 2022Q1

REPORT INFORMATION
  Report Type: Spontaneous
  Country: JP (occurrence: JP)
  Receive Date: 20220209
  Receipt Date: 20220303
  Transmission Date: 20220423
  Serious: Yes (Death, Other)
  Sender: FDA-Public Use
  Company Number: JP-ELI_LILLY_AND_COMPANY-JP202202002335

PATIENT
  Age: 71 Year

DRUGS (2)
  1. VERZENIO [Suspect]
     Active Substance: ABEMACICLIB
     Indication: Breast cancer metastatic
     Dosage: 200 MG, UNKNOWN
     Route: 048
     Dates: start: 20190311, end: 20190408
  2. FULVESTRANT [Concomitant]
     Active Substance: FULVESTRANT
     Indication: Breast cancer metastatic

REACTIONS (3)
  - Malignant neoplasm progression [Fatal]
  - Myelosuppression [Unknown]
  - Diarrhoea [Unknown]

NARRATIVE: CASE EVENT DATE: 20190408
